FAERS Safety Report 15454347 (Version 1)
Quarter: 2018Q3

REPORT INFORMATION
  Report Type: Spontaneous
  Country: US (occurrence: US)
  Receive Date: 20180927
  Receipt Date: 20180927
  Transmission Date: 20181010
  Serious: Yes (Disabling, Other)
  Sender: FDA-Public Use
  Company Number: None

PATIENT
  Age: 59 Year
  Sex: Female
  Weight: 45.36 kg

DRUGS (15)
  1. CLOBETASOL PROPIONATE. [Concomitant]
     Active Substance: CLOBETASOL PROPIONATE
  2. MULTI VIT [Concomitant]
  3. PAPAYA ENZYME [Concomitant]
  4. MELETONIN [Concomitant]
  5. TYLENOL [Concomitant]
     Active Substance: ACETAMINOPHEN
  6. EXCEDRIN MIGRAINE [Concomitant]
     Active Substance: ACETAMINOPHEN\ASPIRIN\CAFFEINE
  7. FISH OIL [Concomitant]
     Active Substance: FISH OIL
  8. PEPCID COMPLETE [Concomitant]
     Active Substance: CALCIUM CARBONATE\FAMOTIDINE\MAGNESIUM HYDROXIDE
  9. BABY ASP. [Concomitant]
  10. EYE VIT. [Concomitant]
  11. CALCIUM [Concomitant]
     Active Substance: CALCIUM
  12. BENADRYL [Concomitant]
     Active Substance: DIPHENHYDRAMINE HYDROCHLORIDE
  13. PROLIA [Suspect]
     Active Substance: DENOSUMAB
     Indication: BONE DENSITY ABNORMAL
     Dates: start: 20180629
  14. FLONASE [Concomitant]
     Active Substance: FLUTICASONE PROPIONATE
  15. VIT C + D [Concomitant]

REACTIONS (11)
  - Arthritis [None]
  - Rash [None]
  - Dermatitis [None]
  - Emotional disorder [None]
  - Confusional state [None]
  - Migraine [None]
  - Pruritus generalised [None]
  - Dyspnoea [None]
  - Hyperhidrosis [None]
  - Pain in extremity [None]
  - Headache [None]

NARRATIVE: CASE EVENT DATE: 20180702
